FAERS Safety Report 14152097 (Version 1)
Quarter: 2017Q4

REPORT INFORMATION
  Report Type: Spontaneous
  Country: US (occurrence: None)
  Receive Date: 20171102
  Receipt Date: 20171102
  Transmission Date: 20180321
  Serious: Yes (Disabling)
  Sender: FDA-Public Use
  Company Number: None

PATIENT
  Age: 31 Year
  Sex: Male
  Weight: 108.84 kg

DRUGS (6)
  1. OLD SPICE FRESH HIGH ENDURANCE [Suspect]
     Active Substance: ALUMINUM ZIRCONIUM TRICHLOROHYDREX GLY
     Route: 061
     Dates: start: 2014, end: 2014
  2. SUAVE HOUSE SOAP LIQUID [Concomitant]
  3. SUAVE MEN SPORT BODY WASH FRESH BLUE BODY WASH [Concomitant]
  4. SUAVE MEN SPORT BODY WASH [Concomitant]
  5. RISPERIDONE. [Concomitant]
     Active Substance: RISPERIDONE
  6. CLOBETASOL [Concomitant]
     Active Substance: CLOBETASOL

REACTIONS (30)
  - Infection [None]
  - Axillary pain [None]
  - Cyst [None]
  - Axillary mass [None]
  - Skin irritation [None]
  - Pigmentation disorder [None]
  - Pain [None]
  - Skin mass [None]
  - Rash pustular [None]
  - Dermal cyst [None]
  - Secretion discharge [None]
  - Rash [None]
  - Nodule [None]
  - Papule [None]
  - Skin exfoliation [None]
  - Inflammation [None]
  - Purulent discharge [None]
  - Neoplasm skin [None]
  - Chemical burn of skin [None]
  - Folliculitis [None]
  - Blood disorder [None]
  - Hidradenitis [None]
  - Lymphocele [None]
  - Dermatitis [None]
  - Skin burning sensation [None]
  - Skin lesion [None]
  - Pruritus [None]
  - Dry skin [None]
  - Scar [None]
  - Erythema [None]

NARRATIVE: CASE EVENT DATE: 2014
